FAERS Safety Report 4908580-4 (Version None)
Quarter: 2006Q1

REPORT INFORMATION
  Report Type: 
  Country: None (occurrence: None)
  Receive Date: 20060210
  Receipt Date: 20050906
  Transmission Date: 20060701
  Serious: No
  Sender: FDA-Public Use
  Company Number: US-GLAXOSMITHKLINE-A0573102A

PATIENT
  Age: 59 Year
  Sex: Female

DRUGS (12)
  1. PAXIL CR [Suspect]
     Dosage: 25MG PER DAY
     Route: 048
  2. DIPYRIDAMOLE [Concomitant]
  3. MOTRIN [Concomitant]
  4. TYLENOL (CAPLET) [Concomitant]
  5. AMITRIPTYLINE HCL [Concomitant]
  6. LOTREL [Concomitant]
  7. FLOVENT [Concomitant]
  8. SEREVENT [Concomitant]
  9. NEXIUM [Concomitant]
  10. LIPITOR [Concomitant]
  11. MULTI-VITAMIN [Concomitant]
  12. CALCIUM GLUCONATE [Concomitant]

REACTIONS (2)
  - DRUG INEFFECTIVE [None]
  - MUSCLE SPASMS [None]
